FAERS Safety Report 16950892 (Version 1)
Quarter: 2019Q4

REPORT INFORMATION
  Report Type: Spontaneous
  Country: CA (occurrence: CA)
  Receive Date: 20191023
  Receipt Date: 20191023
  Transmission Date: 20200122
  Serious: Yes (Hospitalization)
  Sender: FDA-Public Use
  Company Number: CA-PFIZER INC-2019453578

PATIENT
  Age: 71 Year
  Sex: Female

DRUGS (4)
  1. TEGRETOL [Suspect]
     Active Substance: CARBAMAZEPINE
     Dosage: 800 MG, 1X/DAY
  2. MOGADON [Suspect]
     Active Substance: NITRAZEPAM
     Dosage: 5 MG, 1X/DAY
  3. DILANTIN [Suspect]
     Active Substance: PHENYTOIN
     Dosage: 150 MG, 1X/DAY
  4. PRIMIDONE. [Suspect]
     Active Substance: PRIMIDONE
     Dosage: 75 MG, 1X/DAY

REACTIONS (2)
  - Seizure [Unknown]
  - Ataxia [Unknown]
